FAERS Safety Report 20045882 (Version 2)
Quarter: 2021Q4

REPORT INFORMATION
  Report Type: Report from Study
  Country: CH (occurrence: CH)
  Receive Date: 20211108
  Receipt Date: 20211202
  Transmission Date: 20220304
  Serious: Yes (Hospitalization, Other)
  Sender: FDA-Public Use
  Company Number: CH-ABBVIE-21K-151-4146723-00

PATIENT
  Age: 53 Year
  Sex: Male
  Weight: 119 kg

DRUGS (5)
  1. HUMIRA [Suspect]
     Active Substance: ADALIMUMAB
     Indication: Psoriatic arthropathy
     Route: 058
     Dates: start: 20170201, end: 20210825
  2. HUMIRA [Suspect]
     Active Substance: ADALIMUMAB
     Indication: Psoriasis
     Route: 058
     Dates: start: 2021
  3. BISOPROLOL [Concomitant]
     Active Substance: BISOPROLOL
     Indication: Atrial fibrillation
     Route: 048
     Dates: start: 201902
  4. CANDESARTAN CILEXETIL\HYDROCHLOROTHIAZIDE [Concomitant]
     Active Substance: CANDESARTAN CILEXETIL\HYDROCHLOROTHIAZIDE
     Indication: Hypertension
     Dosage: 12.5/8MG
     Route: 048
  5. ESOMEPRAZOLE [Concomitant]
     Active Substance: ESOMEPRAZOLE
     Indication: Product used for unknown indication
     Route: 065

REACTIONS (15)
  - Left ventricular dysfunction [Recovered/Resolved]
  - Inguinal hernia [Recovered/Resolved]
  - Pulmonary oedema [Recovered/Resolved]
  - Atrial fibrillation [Recovered/Resolved]
  - Hyperventilation [Recovered/Resolved]
  - General physical health deterioration [Recovered/Resolved]
  - C-reactive protein increased [Recovered/Resolved]
  - Troponin increased [Unknown]
  - Cardiac ablation [Unknown]
  - Cardiac ablation [Unknown]
  - Lung disorder [Unknown]
  - Sense of oppression [Recovered/Resolved]
  - Dyspnoea at rest [Recovered/Resolved]
  - Dyspnoea exertional [Recovered/Resolved]
  - Hypertension [Unknown]

NARRATIVE: CASE EVENT DATE: 20190101
